FAERS Safety Report 15641904 (Version 2)
Quarter: 2019Q1

REPORT INFORMATION
  Report Type: Report from Study
  Country: CA (occurrence: CA)
  Receive Date: 20181121
  Receipt Date: 20190130
  Transmission Date: 20190417
  Serious: Yes (Other)
  Sender: FDA-Public Use
  Company Number: CA-REGENERON PHARMACEUTICALS, INC.-2018-45049

PATIENT

DRUGS (1)
  1. EYLEA [Suspect]
     Active Substance: AFLIBERCEPT
     Indication: DIABETIC RETINOPATHY
     Dosage: TOTAL EYLEA DOSE AND LAST DOSE WERE NOT REPORTED
     Dates: start: 20181105

REACTIONS (3)
  - Product use in unapproved indication [Unknown]
  - Stent placement [Unknown]
  - Off label use [Unknown]
